FAERS Safety Report 14245129 (Version 5)
Quarter: 2019Q1

REPORT INFORMATION
  Report Type: Spontaneous
  Country: US (occurrence: US)
  Receive Date: 20171202
  Receipt Date: 20190227
  Transmission Date: 20190417
  Serious: No
  Sender: FDA-Public Use
  Company Number: US-ASTRAZENECA-2017SF22155

PATIENT
  Age: 28535 Day
  Sex: Male
  Weight: 74.8 kg

DRUGS (5)
  1. TAGRISSO [Suspect]
     Active Substance: OSIMERTINIB
     Indication: LUNG NEOPLASM MALIGNANT
     Route: 048
  2. SYSTANE (HYPROMELLOSE 2910 (4000 MPA.S)) [Concomitant]
     Active Substance: HYPROMELLOSE 2910 (4000 MPA.S)
     Dosage: THREE TIMES A DAY
  3. TAGRISSO [Suspect]
     Active Substance: OSIMERTINIB
     Indication: LUNG NEOPLASM MALIGNANT
     Route: 048
     Dates: start: 20171114
  4. DOXYCYCLINE. [Suspect]
     Active Substance: DOXYCYCLINE
     Indication: ARTHROPOD BITE
     Dosage: 42 TABS
     Route: 048
     Dates: start: 20180503
  5. DOXYCYCLINE. [Suspect]
     Active Substance: DOXYCYCLINE
     Indication: ARTHROPOD BITE
     Route: 048
     Dates: start: 20180614

REACTIONS (14)
  - Limb injury [Unknown]
  - Contusion [Unknown]
  - Hypogeusia [Unknown]
  - Rash [Not Recovered/Not Resolved]
  - Arthropod bite [Unknown]
  - Asthenopia [Unknown]
  - Decreased appetite [Unknown]
  - Tongue discolouration [Recovered/Resolved]
  - Photophobia [Unknown]
  - Dry eye [Unknown]
  - Weight decreased [Unknown]
  - Eye haemorrhage [Unknown]
  - Eye disorder [Unknown]
  - Urticaria [Not Recovered/Not Resolved]

NARRATIVE: CASE EVENT DATE: 20171128
